FAERS Safety Report 4594613-4 (Version None)
Quarter: 2005Q1

REPORT INFORMATION
  Report Type: 
  Country: None (occurrence: None)
  Receive Date: 20050301
  Receipt Date: 20041101
  Transmission Date: 20050727
  Serious: Yes (Life-Threatening, Hospitalization)
  Sender: FDA-Public Use
  Company Number: US-BRISTOL-MYERS SQUIBB COMPANY-12754693

PATIENT
  Age: 74 Year
  Sex: Female
  Weight: 100 kg

DRUGS (3)
  1. ERBITUX [Suspect]
     Indication: COLON CANCER
     Dosage: 1ST DOSE, STOPPED AFTER 30 MINS
     Route: 042
     Dates: start: 20041101, end: 20041101
  2. TYLENOL (CAPLET) [Concomitant]
     Indication: PREMEDICATION
     Route: 048
     Dates: start: 20041101, end: 20041101
  3. BENADRYL [Concomitant]
     Indication: PREMEDICATION
     Route: 042
     Dates: start: 20041101, end: 20041101

REACTIONS (1)
  - DYSPNOEA [None]
